FAERS Safety Report 4809491-5 (Version None)
Quarter: 2005Q4

REPORT INFORMATION
  Report Type: 
  Country: None (occurrence: None)
  Receive Date: 20051025
  Receipt Date: 20031121
  Transmission Date: 20060501
  Serious: Yes (Death, Hospitalization, Disabling)
  Sender: FDA-Public Use
  Company Number: US-MERCK-0311USA02525

PATIENT
  Age: 54 Year
  Sex: Female
  Weight: 85 kg

DRUGS (6)
  1. VIOXX [Suspect]
     Indication: MUSCLE SPASMS
     Route: 048
     Dates: start: 20000901, end: 20010201
  2. TAMOXIFEN CITRATE [Concomitant]
     Route: 065
  3. AMBIEN [Concomitant]
     Route: 065
  4. PHENERGAN [Concomitant]
     Route: 065
  5. VIOXX [Suspect]
     Route: 048
     Dates: start: 20021210
  6. TYLENOL (CAPLET) [Concomitant]
     Route: 065

REACTIONS (21)
  - ANOREXIA [None]
  - ANXIETY [None]
  - ARTHRALGIA [None]
  - ARTHRITIS [None]
  - BONE NEOPLASM MALIGNANT [None]
  - BREAST CANCER [None]
  - CERVIX CARCINOMA [None]
  - CONSTIPATION [None]
  - CORONARY ARTERY DISEASE [None]
  - DEATH [None]
  - DIZZINESS [None]
  - HAEMATEMESIS [None]
  - HEPATIC FAILURE [None]
  - HYPERCHOLESTEROLAEMIA [None]
  - HYPERTENSION [None]
  - INJURY [None]
  - LYMPHOEDEMA [None]
  - MYOCARDIAL INFARCTION [None]
  - OEDEMA PERIPHERAL [None]
  - PANIC ATTACK [None]
  - UPPER GASTROINTESTINAL HAEMORRHAGE [None]
